FAERS Safety Report 16065804 (Version 1)
Quarter: 2019Q1

REPORT INFORMATION
  Report Type: Spontaneous
  Country: US (occurrence: US)
  Receive Date: 20190211
  Receipt Date: 20190211
  Transmission Date: 20190418
  Serious: No
  Sender: FDA-Public Use
  Company Number: None

PATIENT
  Age: 63 Year
  Sex: Male

DRUGS (1)
  1. SOFOSB/VELPAT 400-100MG (X14) [Suspect]
     Active Substance: SOFOSBUVIR\VELPATASVIR
     Dosage: OTHER DOSE:400-100MG;?
     Route: 048
     Dates: start: 201902

REACTIONS (3)
  - Headache [None]
  - Fatigue [None]
  - Drug interaction [None]

NARRATIVE: CASE EVENT DATE: 20190211
